FAERS Safety Report 18388493 (Version 4)
Quarter: 2020Q4

REPORT INFORMATION
  Report Type: Spontaneous
  Country: US (occurrence: US)
  Receive Date: 20201015
  Receipt Date: 20201127
  Transmission Date: 20210114
  Serious: Yes (Death, Life-Threatening, Hospitalization, Other)
  Sender: FDA-Public Use
  Company Number: US-GILEAD-2020-0499068

PATIENT
  Age: 69 Year
  Sex: Male
  Weight: 77.4 kg

DRUGS (1)
  1. YESCARTA [Suspect]
     Active Substance: AXICABTAGENE CILOLEUCEL
     Indication: DIFFUSE LARGE B-CELL LYMPHOMA
     Dosage: 68 ML, SINGLE DOSE
     Route: 042
     Dates: start: 20201006, end: 20201006

REACTIONS (4)
  - Acute myocardial infarction [Fatal]
  - Neurotoxicity [Not Recovered/Not Resolved]
  - Bacteraemia [Unknown]
  - Cytokine release syndrome [Not Recovered/Not Resolved]

NARRATIVE: CASE EVENT DATE: 20201010
